FAERS Safety Report 10072551 (Version 1)
Quarter: 2014Q2

REPORT INFORMATION
  Report Type: Report from Study
  Country: US (occurrence: US)
  Receive Date: 20140411
  Receipt Date: 20140411
  Transmission Date: 20141212
  Serious: Yes (Other)
  Sender: FDA-Public Use
  Company Number: US-ABBVIE-14P-163-1221478-00

PATIENT
  Age: 42 Year
  Sex: Female
  Weight: 109.87 kg

DRUGS (1)
  1. LUPRON DEPOT [Suspect]
     Indication: UTERINE LEIOMYOMA
     Route: 030
     Dates: start: 2012, end: 2013

REACTIONS (4)
  - Haemorrhage [Not Recovered/Not Resolved]
  - Uterine enlargement [Not Recovered/Not Resolved]
  - Pain [Unknown]
  - Uterine leiomyoma [Not Recovered/Not Resolved]
